FAERS Safety Report 18080372 (Version 1)
Quarter: 2020Q3

REPORT INFORMATION
  Report Type: Spontaneous
  Country: US (occurrence: US)
  Receive Date: 20200728
  Receipt Date: 20200728
  Transmission Date: 20201103
  Serious: No
  Sender: FDA-Public Use
  Company Number: US-MACLEODS PHARMACEUTICALS US LTD-MAC2020027419

PATIENT

DRUGS (4)
  1. NATURES SUNSHINE DIGESTIVE BITTERS [Concomitant]
     Indication: IRRITABLE BOWEL SYNDROME
     Dosage: UNK
     Route: 065
  2. NATURES SUNSHINE PDA SUPPLEMENT [Concomitant]
     Indication: IRRITABLE BOWEL SYNDROME
     Dosage: UNK
     Route: 065
  3. AMLODIPINE [Suspect]
     Active Substance: AMLODIPINE BESYLATE
     Indication: PRODUCT USED FOR UNKNOWN INDICATION
     Dosage: UNK
     Route: 065
  4. ZYDUS BOSENTAN [Concomitant]
     Active Substance: BOSENTAN
     Indication: PULMONARY ARTERIAL HYPERTENSION
     Dosage: 1 DOSAGE FORM, BID, NDC: 68382?0446?14
     Route: 048
     Dates: start: 20190613

REACTIONS (6)
  - Dizziness [Unknown]
  - Hypotension [Not Recovered/Not Resolved]
  - Weight decreased [Unknown]
  - Dyspnoea exertional [Unknown]
  - Neck injury [Recovering/Resolving]
  - Dyspnoea [Unknown]

NARRATIVE: CASE EVENT DATE: 202001
